FAERS Safety Report 18306174 (Version 16)
Quarter: 2021Q3

REPORT INFORMATION
  Report Type: Spontaneous
  Country: CA (occurrence: CA)
  Receive Date: 20200923
  Receipt Date: 20210920
  Transmission Date: 20211014
  Serious: Yes (Other)
  Sender: FDA-Public Use
  Company Number: CA-CELLTRION INC.-2020CA027375

PATIENT

DRUGS (19)
  1. INFLECTRA [Suspect]
     Active Substance: INFLIXIMAB-DYYB
     Dosage: 10 MG/KG, 0, 2, 6, THEN EVERY 6 WEEKS (RE?INDUCTION)
     Route: 042
     Dates: start: 20210722
  2. MEZAVANT [Concomitant]
     Active Substance: MESALAMINE
     Dosage: 1 DF, DOSAGE INFO NOT AVAILABLE
     Route: 054
  3. INFLECTRA [Suspect]
     Active Substance: INFLIXIMAB-DYYB
     Dosage: 700 MG, 0, 2, 6, THEN EVERY 8 WEEKS (2 WEEK DOSE)
     Route: 042
     Dates: start: 20200901, end: 20200901
  4. INFLECTRA [Suspect]
     Active Substance: INFLIXIMAB-DYYB
     Indication: COLITIS ULCERATIVE
     Dosage: 700 MG, 0, 2, 6, THEN EVERY 8 WEEKS (0 WEEK DOSE)
     Route: 042
     Dates: start: 20200819, end: 20200819
  5. INFLECTRA [Suspect]
     Active Substance: INFLIXIMAB-DYYB
     Dosage: 10 MG/KG AT WEEK 6, THEN EVERY 8 WEEKS
     Route: 042
     Dates: start: 20200929
  6. INFLECTRA [Suspect]
     Active Substance: INFLIXIMAB-DYYB
     Dosage: 10 MG/KG AT WEEK 6, THEN EVERY 8 WEEKS
     Route: 042
     Dates: start: 20201124
  7. INFLECTRA [Suspect]
     Active Substance: INFLIXIMAB-DYYB
     Dosage: 10 MG/KG AT WEEK 6, THEN EVERY 8 WEEKS
     Route: 042
     Dates: start: 20201124
  8. MEZAVANT [Concomitant]
     Active Substance: MESALAMINE
     Dosage: 1 UNK
     Route: 054
  9. INFLECTRA [Suspect]
     Active Substance: INFLIXIMAB-DYYB
     Dosage: 10 MG/KG AT WEEK 6, THEN EVERY 8 WEEKS
     Route: 042
     Dates: start: 20210301
  10. INFLECTRA [Suspect]
     Active Substance: INFLIXIMAB-DYYB
     Dosage: 10 MG/KG, 0, 2, 6, THEN EVERY 6 WEEKS (RE?INDUCTION)
     Route: 042
     Dates: start: 20210420
  11. INFLECTRA [Suspect]
     Active Substance: INFLIXIMAB-DYYB
     Dosage: 10 MG/KG, 0, 2, 6, THEN EVERY 6 WEEKS (RE?INDUCTION)
     Route: 042
     Dates: start: 20210629
  12. PREDNISONE. [Concomitant]
     Active Substance: PREDNISONE
     Dosage: 40 MG, DAILY
     Route: 048
  13. INFLECTRA [Suspect]
     Active Substance: INFLIXIMAB-DYYB
     Dosage: 10 MG/KG AT WEEK 6, THEN EVERY 8 WEEKS
     Route: 042
     Dates: start: 20210105, end: 202101
  14. INFLECTRA [Suspect]
     Active Substance: INFLIXIMAB-DYYB
     Dosage: 10 MG/KG, 0, 2, 6, THEN EVERY 6 WEEKS (RE?INDUCTION)
     Route: 042
     Dates: start: 20210406
  15. INFLECTRA [Suspect]
     Active Substance: INFLIXIMAB-DYYB
     Dosage: 10 MG/KG, 0, 2, 6, THEN EVERY 6 WEEKS (RE?INDUCTION)
     Route: 042
     Dates: start: 20210518
  16. INFLECTRA [Suspect]
     Active Substance: INFLIXIMAB-DYYB
     Dosage: 10 MG/KG, 0, 2, 6, THEN EVERY 6 WEEKS (RE?INDUCTION)
     Route: 042
     Dates: start: 20210908
  17. PREDNISONE. [Concomitant]
     Active Substance: PREDNISONE
     Dosage: 1 UNK
     Route: 042
  18. PREDNISONE. [Concomitant]
     Active Substance: PREDNISONE
     Dosage: 1 DF
     Route: 041
  19. PREDNISONE. [Concomitant]
     Active Substance: PREDNISONE
     Dosage: 1 DF, DOSEGE INFO NOT AVAILABLE
     Route: 065

REACTIONS (13)
  - Crohn^s disease [Unknown]
  - Osteomyelitis [Unknown]
  - Inappropriate schedule of product administration [Unknown]
  - Drug ineffective [Unknown]
  - Off label use [Unknown]
  - Insomnia [Unknown]
  - Localised infection [Not Recovered/Not Resolved]
  - Weight decreased [Unknown]
  - Drug level decreased [Unknown]
  - Back pain [Not Recovered/Not Resolved]
  - Haemoglobin decreased [Unknown]
  - Colitis ulcerative [Not Recovered/Not Resolved]
  - Condition aggravated [Not Recovered/Not Resolved]

NARRATIVE: CASE EVENT DATE: 2020
